FAERS Safety Report 10564567 (Version 1)
Quarter: 2014Q4

REPORT INFORMATION
  Report Type: Spontaneous
  Country: US (occurrence: US)
  Receive Date: 20141104
  Receipt Date: 20141104
  Transmission Date: 20150529
  Serious: No
  Sender: FDA-Public Use
  Company Number: US-MALLINCKRODT-T201403223

PATIENT
  Sex: Female

DRUGS (4)
  1. PREDNISONE. [Suspect]
     Active Substance: PREDNISONE
     Indication: RASH PRURITIC
     Dosage: UNK
     Route: 030
     Dates: start: 20140811, end: 20140811
  2. PREDNISONE. [Suspect]
     Active Substance: PREDNISONE
     Indication: CONTUSION
  3. OXYCODONE [Concomitant]
     Active Substance: OXYCODONE
     Indication: BREAKTHROUGH PAIN
     Dosage: 10 MG, UNK
  4. FENTANYL TRANSDERMAL SYSTEM [Suspect]
     Active Substance: FENTANYL
     Indication: ARTHRALGIA
     Dosage: 50 UG/HR, Q 72 HRS
     Route: 062
     Dates: start: 20140808, end: 20140811

REACTIONS (5)
  - Application site erythema [Recovering/Resolving]
  - Application site irritation [Recovering/Resolving]
  - Swelling face [Recovered/Resolved]
  - Rash pruritic [Recovering/Resolving]
  - Contusion [Recovering/Resolving]

NARRATIVE: CASE EVENT DATE: 20140808
